FAERS Safety Report 17329631 (Version 1)
Quarter: 2020Q1

REPORT INFORMATION
  Report Type: Spontaneous
  Country: US (occurrence: US)
  Receive Date: 20200127
  Receipt Date: 20200127
  Transmission Date: 20200409
  Serious: No
  Sender: FDA-Public Use
  Company Number: US-BEH-2020111859

PATIENT
  Sex: Male

DRUGS (2)
  1. IDELVION [Suspect]
     Active Substance: COAGULATION FACTOR IX RECOMBINANT HUMAN
     Indication: HAEMOPHILIA
     Dosage: UNK
     Route: 065
     Dates: start: 20180202
  2. IDELVION [Suspect]
     Active Substance: COAGULATION FACTOR IX RECOMBINANT HUMAN
     Indication: HAEMOPHILIA
     Dosage: UNK
     Route: 065
     Dates: start: 20180202

REACTIONS (2)
  - Nausea [Unknown]
  - Dizziness [Unknown]
